FAERS Safety Report 9311722 (Version 1)
Quarter: 2013Q1

REPORT INFORMATION
  Report Type: Spontaneous
  Country: GB (occurrence: None)
  Receive Date: 20130103
  Receipt Date: 20130103
  Transmission Date: 20140127
  Serious: Yes (Other)
  Sender: FDA-Public Use
  Company Number: 2012-20745

PATIENT
  Age: 70 Year
  Sex: Female
  Weight: 72 kg

DRUGS (21)
  1. IBUPROFEN [Suspect]
  2. IBUPROFEN [Suspect]
  3. IBUPROFEN [Suspect]
  4. IBUPROFEN [Suspect]
  5. IBUPROFEN [Suspect]
  6. IBUPROFEN [Suspect]
  7. LANSOPRAZOLE [Suspect]
  8. LANSOPRAZOLE [Suspect]
  9. LANSOPRAZOLE [Suspect]
  10. LANSOPRAZOLE [Suspect]
  11. METFORMIN HYDROCHLORIDE [Suspect]
  12. LOPERAMIDE [Suspect]
     Dosage: WITH BOWEL SYMPTOMS
  13. LOPERAMIDE [Suspect]
     Dosage: WITH BOWEL SYMPTOMS
  14. LOPERAMIDE [Suspect]
     Dosage: WITH BOWEL SYMPTOMS
  15. ATORVASTATIN [Suspect]
  16. ATORVASTATIN [Suspect]
  17. CARBAMAZEPINE (CARBAMAZEPINE) [Suspect]
     Dosage: 2 TABLETS
     Route: 048
  18. CARBAMAZEPINE (CARBAMAZEPINE) [Suspect]
     Dosage: 2 TABLETS
     Route: 048
  19. CARBAMAZEPINE (CARBAMAZEPINE) [Suspect]
     Dosage: 2 TABLETS
     Route: 048
  20. GLYCERYL TRINITRATE [Suspect]
     Dosage: PER DOSE AS DIRECTED
  21. XISMOX [Suspect]

REACTIONS (1)
  - Colitis microscopic [None]
